FAERS Safety Report 11806302 (Version 1)
Quarter: 2015Q4

REPORT INFORMATION
  Report Type: Spontaneous
  Country: AU (occurrence: AU)
  Receive Date: 20151207
  Receipt Date: 20151207
  Transmission Date: 20160305
  Serious: Yes (Hospitalization, Other)
  Sender: FDA-Public Use
  Company Number: AU-GLAXOSMITHKLINE-AU2013GSK000435

PATIENT
  Sex: Male

DRUGS (1)
  1. OMACOR [Suspect]
     Active Substance: OMEGA-3-ACID ETHYL ESTERS
     Indication: PRODUCT USED FOR UNKNOWN INDICATION
     Dosage: 1000 MG, 1D
     Route: 048

REACTIONS (3)
  - Hospitalisation [Unknown]
  - Incorrect product storage [Unknown]
  - Product physical issue [Unknown]
